FAERS Safety Report 9290083 (Version 1)
Quarter: 2013Q2

REPORT INFORMATION
  Report Type: Spontaneous
  Country: DE (occurrence: DE)
  Receive Date: 20130515
  Receipt Date: 20130515
  Transmission Date: 20140414
  Serious: Yes (Hospitalization)
  Sender: FDA-Public Use
  Company Number: DE-JNJFOC-20130210314

PATIENT
  Age: 23 Year
  Sex: Female

DRUGS (1)
  1. XEPLION [Suspect]
     Indication: PSYCHOTIC DISORDER
     Dosage: 25-75 MG
     Route: 030
     Dates: start: 201109, end: 201212

REACTIONS (1)
  - Injection site abscess [Not Recovered/Not Resolved]
